FAERS Safety Report 10710337 (Version 1)
Quarter: 2015Q1

REPORT INFORMATION
  Report Type: Spontaneous
  Country: US (occurrence: US)
  Receive Date: 20150114
  Receipt Date: 20150114
  Transmission Date: 20150721
  Serious: No
  Sender: FDA-Public Use
  Company Number: US-ELI_LILLY_AND_COMPANY-US201412007617

PATIENT
  Age: 82 Year
  Sex: Female

DRUGS (3)
  1. HUMALOG [Suspect]
     Active Substance: INSULIN LISPRO
     Indication: DIABETES MELLITUS
     Dosage: UNK, PRN
     Route: 065
     Dates: start: 201409
  2. CRESTOR [Concomitant]
     Active Substance: ROSUVASTATIN CALCIUM
  3. LEVEMIR [Concomitant]
     Active Substance: INSULIN DETEMIR

REACTIONS (3)
  - Hypoacusis [Unknown]
  - Pain [Unknown]
  - Memory impairment [Unknown]
